FAERS Safety Report 6048803-4 (Version None)
Quarter: 2009Q1

REPORT INFORMATION
  Report Type: 
  Country: None (occurrence: None)
  Receive Date: 20090123
  Receipt Date: 20090116
  Transmission Date: 20090719
  Serious: Yes (Disabling)
  Sender: FDA-Public Use
  Company Number: US-MERCK-0901USA02398

PATIENT
  Age: 52 Year
  Sex: Female

DRUGS (6)
  1. ZOCOR [Suspect]
     Indication: BLOOD CHOLESTEROL INCREASED
     Route: 048
     Dates: start: 19940101, end: 20090113
  2. ZOCOR [Suspect]
     Route: 065
  3. ACCUPRIL [Concomitant]
     Route: 065
  4. BUSPAR [Concomitant]
     Route: 065
  5. PROMETRIUM [Concomitant]
     Route: 065
  6. ATENOLOL [Concomitant]
     Route: 065

REACTIONS (10)
  - ABDOMINAL PAIN [None]
  - APPETITE DISORDER [None]
  - ASTHENIA [None]
  - FATIGUE [None]
  - GASTROINTESTINAL DISORDER [None]
  - GASTROOESOPHAGEAL REFLUX DISEASE [None]
  - HEADACHE [None]
  - MALAISE [None]
  - SENSATION OF PRESSURE [None]
  - WEIGHT DECREASED [None]
